FAERS Safety Report 11241030 (Version 1)
Quarter: 2015Q3

REPORT INFORMATION
  Report Type: Spontaneous
  Country: JP (occurrence: JP)
  Receive Date: 20150706
  Receipt Date: 20150706
  Transmission Date: 20151125
  Serious: Yes (Hospitalization)
  Sender: FDA-Public Use
  Company Number: JP-FRESENIUS KABI-FK201502802

PATIENT
  Age: 70 Year
  Sex: Male

DRUGS (4)
  1. DOCETAXEL (MANUFACTURER UNKNOWN) [Suspect]
     Active Substance: DOCETAXEL
     Indication: METASTASES TO LUNG
  2. GEMCITABINE [Suspect]
     Active Substance: GEMCITABINE\GEMCITABINE HYDROCHLORIDE
     Indication: PLEOMORPHIC MALIGNANT FIBROUS HISTIOCYTOMA
     Route: 065
  3. DOCETAXEL (MANUFACTURER UNKNOWN) [Suspect]
     Active Substance: DOCETAXEL
     Indication: PLEOMORPHIC MALIGNANT FIBROUS HISTIOCYTOMA
     Route: 065
  4. GEMCITABINE [Suspect]
     Active Substance: GEMCITABINE\GEMCITABINE HYDROCHLORIDE
     Indication: METASTASES TO LUNG

REACTIONS (2)
  - Pneumothorax [Recovered/Resolved]
  - Neutropenia [Recovering/Resolving]
